FAERS Safety Report 6758675-8 (Version None)
Quarter: 2010Q2

REPORT INFORMATION
  Report Type: 
  Country: None (occurrence: None)
  Receive Date: 20100607
  Receipt Date: 20100602
  Transmission Date: 20101027
  Serious: Yes (Hospitalization)
  Sender: FDA-Public Use
  Company Number: JP-BAYER-201012699BYL

PATIENT
  Age: 76 Year
  Sex: Male
  Weight: 57 kg

DRUGS (6)
  1. NEXAVAR [Suspect]
     Indication: HEPATIC NEOPLASM MALIGNANT
     Dosage: TOTAL DAILY DOSE: 800 MG  UNIT DOSE: 200 MG
     Route: 048
     Dates: start: 20090713, end: 20090726
  2. GASMOTIN [Concomitant]
     Dosage: SINCE BEFORE ADMINISTRATION
     Route: 048
  3. MICARDIS [Concomitant]
     Dosage: SINCE BEFORE ADMINISTRATION
     Route: 048
  4. PROSTAL [Concomitant]
     Dosage: SINCE BEFORE ADMINISTRATION
     Route: 048
  5. TAMSULOSIN HCL [Concomitant]
     Dosage: SINCE BEFORE ADMINISTRATION
     Route: 048
  6. FAMOTIDINE D [Concomitant]
     Dosage: SINCE BEFORE ADMINISTRATION
     Route: 048

REACTIONS (4)
  - DECREASED APPETITE [None]
  - MALAISE [None]
  - ORAL PAIN [None]
  - RASH [None]
